FAERS Safety Report 5592552-3 (Version None)
Quarter: 2008Q1

REPORT INFORMATION
  Report Type: 
  Country: None (occurrence: None)
  Receive Date: 20080111
  Receipt Date: 20071226
  Transmission Date: 20080703
  Serious: Yes (Hospitalization)
  Sender: FDA-Public Use
  Company Number: DSA_31112_2008

PATIENT
  Sex: Male

DRUGS (9)
  1. TILDIEM (TILDIEM - DILTIAZEM HYDROCHLORIDE) [Suspect]
     Indication: ARRHYTHMIA
     Dosage: (60 MG BID ORAL)
     Route: 048
     Dates: end: 20071124
  2. PLAVIX [Suspect]
     Indication: CAROTID ARTERY DISEASE
     Dosage: (75 MG QD ORAL)
     Route: 048
     Dates: start: 20071003, end: 20071124
  3. PLAVIX [Suspect]
     Indication: CAROTID ENDARTERECTOMY
     Dosage: (75 MG QD ORAL)
     Route: 048
     Dates: start: 20071003, end: 20071124
  4. KARDEGIC /0002703/ [Concomitant]
  5. SEROPRAM /00582602/ [Concomitant]
  6. IMOVANE [Concomitant]
  7. AMARYL [Suspect]
     Indication: TYPE 2 DIABETES MELLITUS
     Dosage: 2 MG; A FEW YEARS
     Dates: end: 20071124
  8. METFORMIN HCL [Suspect]
     Indication: TYPE 2 DIABETES MELLITUS
     Dosage: (1000 MG BID ORAL);A FEW YEARS
     Route: 048
     Dates: end: 20071124
  9. OMIX (OMIX - TAMSULOSIN HYDROCHLORIDE) 0.77 MG [Suspect]
     Indication: BENIGN PROSTATIC HYPERPLASIA
     Dosage: (0.4 MG QD ORAL); A FEW YEARS
     Route: 048
     Dates: end: 20071124

REACTIONS (4)
  - AGRANULOCYTOSIS [None]
  - COUGH [None]
  - ODYNOPHAGIA [None]
  - RHINITIS [None]
